FAERS Safety Report 9291339 (Version 1)
Quarter: 2013Q2

REPORT INFORMATION
  Report Type: Spontaneous
  Country: IT (occurrence: None)
  Receive Date: 20130513
  Receipt Date: 20130513
  Transmission Date: 20140414
  Serious: Yes (Hospitalization)
  Sender: FDA-Public Use
  Company Number: AUR-APL-2013-03869

PATIENT
  Age: 70 Year
  Sex: Female

DRUGS (2)
  1. AMOXICILLIN [Suspect]
     Indication: PRODUCT USED FOR UNKNOWN INDICATION
     Dosage: (1 GM,1 D),ORAL
     Route: 048
     Dates: start: 20130415, end: 20130416
  2. PARACETAMOL (PARACETAMOL) [Concomitant]

REACTIONS (3)
  - Anaphylactic shock [None]
  - Syncope [None]
  - Pulmonary sepsis [None]
